FAERS Safety Report 10096862 (Version 2)
Quarter: 2014Q2

REPORT INFORMATION
  Report Type: Spontaneous
  Country: US (occurrence: US)
  Receive Date: 20140422
  Receipt Date: 20140422
  Transmission Date: 20141212
  Serious: No
  Sender: FDA-Public Use
  Company Number: US-GILEAD-2012-0059408

PATIENT
  Sex: Female
  Weight: 147.39 kg

DRUGS (5)
  1. LETAIRIS [Suspect]
     Indication: PULMONARY HYPERTENSION
     Dosage: 10 MG, UNK
     Route: 048
     Dates: start: 20120505
  2. ALBUTEROL SULFATE [Concomitant]
  3. ASPIRIN [Concomitant]
  4. SYMBICORT [Concomitant]
  5. VENTOLIN HFA [Concomitant]

REACTIONS (8)
  - Dyspepsia [Unknown]
  - Unevaluable event [Unknown]
  - Respiratory disorder [Unknown]
  - Night sweats [Unknown]
  - Wheezing [Unknown]
  - Unevaluable event [Unknown]
  - Cough [Unknown]
  - Dyspnoea [Unknown]
